FAERS Safety Report 7528510-9 (Version None)
Quarter: 2011Q2

REPORT INFORMATION
  Report Type: 
  Country: None (occurrence: None)
  Receive Date: 20110607
  Receipt Date: 20100630
  Transmission Date: 20111010
  Serious: No
  Sender: FDA-Public Use
  Company Number: US-ASTRAZENECA-2010SE32597

PATIENT
  Age: 75 Year
  Sex: Male

DRUGS (3)
  1. PRILOSEC OTC [Suspect]
     Dosage: 1 TABLET, 1 /DAY
     Route: 048
     Dates: start: 20081231
  2. BLOOD PRESSURE [Concomitant]
     Dosage: UNKNOWN
  3. BLOOD CLOTING [Concomitant]
     Dosage: UNKNOWN

REACTIONS (2)
  - MUSCLE SPASMS [None]
  - INCORRECT DRUG ADMINISTRATION DURATION [None]
